FAERS Safety Report 8793899 (Version 2)
Quarter: 2012Q4

REPORT INFORMATION
  Report Type: 
  Country: ES (occurrence: ES)
  Receive Date: 20120917
  Receipt Date: 20121026
  Transmission Date: 20130627
  Serious: Yes (Hospitalization, Other)
  Sender: FDA-Public Use
  Company Number: ES-ELI_LILLY_AND_COMPANY-ES201209001484

PATIENT
  Age: 83 Year
  Sex: Female
  Weight: 65 kg

DRUGS (8)
  1. FORSTEO [Suspect]
     Indication: OSTEOPOROSIS
     Dosage: 20 ug, qd
     Route: 058
     Dates: start: 20120207
  2. CALCIUM [Concomitant]
     Indication: OSTEOPOROSIS
     Dosage: UNK, qd
     Route: 048
  3. LYRICA [Concomitant]
     Indication: NEURALGIA
     Dosage: 75 mg, qd
     Route: 048
  4. CORTISONE [Concomitant]
     Indication: ANTIINFLAMMATORY THERAPY
     Dosage: 15 mg, qd
     Route: 048
  5. OMEPRAZOL [Concomitant]
     Indication: PROPHYLAXIS
     Dosage: 20 mg, qd
     Route: 048
  6. ENALAPRIL [Concomitant]
     Indication: HYPERTENSION
     Dosage: UNK, qd
     Route: 048
  7. ENANTYUM [Concomitant]
     Indication: PAIN
     Dosage: 25 mg, bid
     Route: 048
     Dates: start: 201207
  8. TARDYFERON [Concomitant]
     Indication: ANAEMIA
     Dosage: UNK, qd
     Route: 048
     Dates: start: 201207

REACTIONS (4)
  - Femur fracture [Recovered/Resolved]
  - Hip fracture [Recovering/Resolving]
  - Device dislocation [Recovering/Resolving]
  - Fall [Unknown]
